FAERS Safety Report 4754149-4 (Version None)
Quarter: 2005Q3

REPORT INFORMATION
  Report Type: 
  Country: None (occurrence: None)
  Receive Date: 20050826
  Receipt Date: 19980722
  Transmission Date: 20060218
  Serious: Yes (Hospitalization, Other)
  Sender: FDA-Public Use
  Company Number: JP-ABBOTT-05P-087-0307890-00

PATIENT
  Age: 55 Year
  Sex: Male

DRUGS (3)
  1. ERYTHROCIN [Suspect]
     Indication: ASTHMA
     Route: 048
     Dates: start: 19980604, end: 19980604
  2. ONON [Concomitant]
     Indication: BRONCHITIS
     Route: 048
     Dates: start: 19980604, end: 19980604
  3. THEOPHYLLINE [Concomitant]
     Indication: DRUG USE FOR UNKNOWN INDICATION
     Route: 048
     Dates: start: 19980604, end: 19980604

REACTIONS (4)
  - DYSPNOEA [None]
  - LARYNGEAL OEDEMA [None]
  - PHARYNGEAL OEDEMA [None]
  - VOMITING [None]
